FAERS Safety Report 17535575 (Version 17)
Quarter: 2021Q3

REPORT INFORMATION
  Report Type: Spontaneous
  Country: CA (occurrence: CA)
  Receive Date: 20200313
  Receipt Date: 20210924
  Transmission Date: 20211014
  Serious: Yes (Hospitalization, Other)
  Sender: FDA-Public Use
  Company Number: CA-CELLTRION INC.-2018CA025126

PATIENT

DRUGS (25)
  1. INFLECTRA [Suspect]
     Active Substance: INFLIXIMAB-DYYB
     Dosage: 5 MG/KG (300 MG) WEEK 0, 2, 6 THEN MAINTENANCE EVERY 8 WEEKS (INDUCTION AT 2 AND 6 WEEKS, THEN MAINT
     Route: 042
     Dates: start: 20181228, end: 20190322
  2. INFLECTRA [Suspect]
     Active Substance: INFLIXIMAB-DYYB
     Dosage: 400 MG (7.5 MG/KG), EVERY 8 WEEKS
     Route: 042
     Dates: start: 20190719
  3. INFLECTRA [Suspect]
     Active Substance: INFLIXIMAB-DYYB
     Dosage: 10 MG/KG (600MG), EVERY 6 WEEKS
     Route: 042
     Dates: start: 20210330
  4. PMS?VALACYCLOVIR [Concomitant]
     Dosage: 500 MG, 2 TABLETS 3 TIMES PER DAY FOR 7 DAYS
  5. INFLECTRA [Suspect]
     Active Substance: INFLIXIMAB-DYYB
     Indication: CROHN^S DISEASE
     Dosage: 400 MG (5 MG/KG), WEEK 0, 2, 6 THEN EVERY 8 WEEKS (INDUCTION Q 0 WEEK)
     Route: 042
     Dates: start: 20181212, end: 20181212
  6. INFLECTRA [Suspect]
     Active Substance: INFLIXIMAB-DYYB
     Dosage: 300 MG, WEEK 0, 2, 6 THEN EVERY 8 WEEKS
     Route: 042
     Dates: start: 20190322, end: 20190322
  7. INFLECTRA [Suspect]
     Active Substance: INFLIXIMAB-DYYB
     Dosage: 400 MG (7.5 MG/KG), EVERY 8 WEEKS
     Route: 042
     Dates: start: 20190517, end: 20190517
  8. INFLECTRA [Suspect]
     Active Substance: INFLIXIMAB-DYYB
     Dosage: 10 MG/KG (600MG), EVERY 6 WEEKS
     Route: 042
     Dates: start: 20201118
  9. INFLECTRA [Suspect]
     Active Substance: INFLIXIMAB-DYYB
     Dosage: 10 MG/KG (600MG), EVERY 6 WEEKS
     Route: 042
     Dates: start: 20210511
  10. ENTOCORT [Concomitant]
     Active Substance: BUDESONIDE
     Indication: CROHN^S DISEASE
     Dosage: 3 DF, DAILY (3 TABS)
     Route: 048
     Dates: start: 202010
  11. INFLECTRA [Suspect]
     Active Substance: INFLIXIMAB-DYYB
     Dosage: 400 MG (7.5 MG/KG), EVERY 8 WEEKS
     Route: 042
     Dates: start: 20200811
  12. INFLECTRA [Suspect]
     Active Substance: INFLIXIMAB-DYYB
     Dosage: 400 MG (7.5 MG/KG), EVERY 8 WEEKS
     Route: 042
     Dates: start: 20200103
  13. INFLECTRA [Suspect]
     Active Substance: INFLIXIMAB-DYYB
     Dosage: 400 MG (7.5 MG/KG), EVERY 8 WEEKS
     Route: 042
     Dates: start: 20201006, end: 20201006
  14. INFLECTRA [Suspect]
     Active Substance: INFLIXIMAB-DYYB
     Dosage: 400 MG (5 MG/KG), WEEK 0, 2, 6 THEN EVERY 8 WEEKS
     Route: 042
     Dates: start: 20181212, end: 20181212
  15. INFLECTRA [Suspect]
     Active Substance: INFLIXIMAB-DYYB
     Dosage: 10 MG/KG (600MG), EVERY 6 WEEKS
     Route: 042
     Dates: start: 20210804
  16. INFLECTRA [Suspect]
     Active Substance: INFLIXIMAB-DYYB
     Dosage: 10 MG/KG (600MG), EVERY 6 WEEKS
     Route: 042
     Dates: start: 20210914
  17. INFLECTRA [Suspect]
     Active Substance: INFLIXIMAB-DYYB
     Dosage: 5 MG/KG (300 MG) WEEK 0, 2, 6 THEN EVERY 8 WEEKS
     Route: 042
     Dates: start: 20190124
  18. INFLECTRA [Suspect]
     Active Substance: INFLIXIMAB-DYYB
     Dosage: 400 MG (7.5 MG/KG), EVERY 8 WEEKS
     Route: 042
     Dates: start: 20190913
  19. INFLECTRA [Suspect]
     Active Substance: INFLIXIMAB-DYYB
     Dosage: 10 MG/KG (600MG), EVERY 6 WEEKS
     Route: 042
     Dates: start: 20210216, end: 20210216
  20. INFLECTRA [Suspect]
     Active Substance: INFLIXIMAB-DYYB
     Dosage: 400 MG (7.5 MG/KG), EVERY 8 WEEKS
     Route: 042
     Dates: start: 20190517, end: 20201006
  21. INFLECTRA [Suspect]
     Active Substance: INFLIXIMAB-DYYB
     Dosage: 400 MG (7.5 MG/KG), EVERY 8 WEEKS
     Route: 042
     Dates: start: 20191109
  22. INFLECTRA [Suspect]
     Active Substance: INFLIXIMAB-DYYB
     Dosage: 400 MG (7.5 MG/KG), EVERY 8 WEEKS
     Route: 042
     Dates: start: 20200422
  23. INFLECTRA [Suspect]
     Active Substance: INFLIXIMAB-DYYB
     Dosage: 400 MG (7.5 MG/KG), EVERY 8 WEEKS
     Route: 042
     Dates: start: 20200228
  24. INFLECTRA [Suspect]
     Active Substance: INFLIXIMAB-DYYB
     Dosage: 10 MG/KG (600MG), EVERY 6 WEEKS
     Route: 042
     Dates: start: 20201230, end: 20201230
  25. INFLECTRA [Suspect]
     Active Substance: INFLIXIMAB-DYYB
     Dosage: 10 MG/KG (600MG), EVERY 6 WEEKS
     Route: 042
     Dates: start: 20210622

REACTIONS (29)
  - Off label use [Unknown]
  - Intentional product use issue [Unknown]
  - Diarrhoea [Unknown]
  - Cough [Unknown]
  - Nasopharyngitis [Unknown]
  - Asthenia [Recovered/Resolved]
  - Fatigue [Not Recovered/Not Resolved]
  - Weight fluctuation [Not Recovered/Not Resolved]
  - Malaise [Unknown]
  - Anal fissure [Unknown]
  - Dyspnoea [Unknown]
  - Arthralgia [Not Recovered/Not Resolved]
  - General physical health deterioration [Unknown]
  - Intestinal obstruction [Recovering/Resolving]
  - Condition aggravated [Unknown]
  - Rhinorrhoea [Unknown]
  - Poor quality sleep [Unknown]
  - Pain in extremity [Unknown]
  - Angina pectoris [Unknown]
  - Myalgia [Unknown]
  - Herpes zoster [Recovered/Resolved]
  - Abdominal pain [Not Recovered/Not Resolved]
  - Pneumonia [Recovered/Resolved]
  - Therapeutic product effect incomplete [Not Recovered/Not Resolved]
  - Abdominal distension [Unknown]
  - Nausea [Recovered/Resolved]
  - Hypotension [Unknown]
  - Hot flush [Recovered/Resolved]
  - Infusion site extravasation [Unknown]

NARRATIVE: CASE EVENT DATE: 20181220
